FAERS Safety Report 17586758 (Version 1)
Quarter: 2020Q1

REPORT INFORMATION
  Report Type: Report from Study
  Country: None (occurrence: US)
  Receive Date: 20200326
  Receipt Date: 20200326
  Transmission Date: 20200409
  Serious: Yes (Other)
  Sender: FDA-Public Use
  Company Number: US-ABBVIE-20K-163-3329377-00

PATIENT
  Age: 60 Year
  Sex: Male

DRUGS (1)
  1. HUMIRA [Suspect]
     Active Substance: ADALIMUMAB
     Indication: CROHN^S DISEASE
     Route: 058

REACTIONS (5)
  - Influenza [Recovered/Resolved]
  - Gastrointestinal disorder [Unknown]
  - Therapeutic product effect incomplete [Unknown]
  - Pneumonia [Recovered/Resolved]
  - Intestinal dilatation [Unknown]

NARRATIVE: CASE EVENT DATE: 201910
